FAERS Safety Report 8464713-7 (Version None)
Quarter: 2012Q2

REPORT INFORMATION
  Report Type: 
  Country: None (occurrence: None)
  Receive Date: 20120626
  Receipt Date: 20120619
  Transmission Date: 20120825
  Serious: No
  Sender: FDA-Public Use
  Company Number: US-PFIZER INC-2012147816

PATIENT
  Sex: Female

DRUGS (1)
  1. AZITHROMYCIN [Suspect]
     Dosage: 250 (UNITS NOT PROVIDED), TWICE DAILY

REACTIONS (4)
  - PALPITATIONS [None]
  - FEELING JITTERY [None]
  - ASTHENIA [None]
  - WITHDRAWAL SYNDROME [None]
